FAERS Safety Report 9875178 (Version 2)
Quarter: 2014Q1

REPORT INFORMATION
  Report Type: Other
  Country: US (occurrence: US)
  Receive Date: 20140206
  Receipt Date: 20140206
  Transmission Date: 20141002
  Serious: No
  Sender: FDA-Public Use
  Company Number: US-ACORDA-ACO_35361_2013

PATIENT
  Sex: Female
  Weight: 49.43 kg

DRUGS (3)
  1. AMPYRA [Suspect]
     Indication: GAIT DISTURBANCE
     Dosage: 10 MG, BID
     Route: 048
  2. COPAXONE [Concomitant]
     Indication: PRODUCT USED FOR UNKNOWN INDICATION
     Dosage: 20 MG/ML, UNK
     Route: 065
  3. ALLERGY RELIEF MEDICINE [Concomitant]
     Dosage: UNK

REACTIONS (1)
  - Insomnia [Not Recovered/Not Resolved]
